FAERS Safety Report 23810128 (Version 2)
Quarter: 2025Q3

REPORT INFORMATION
  Report Type: Report from Study
  Country: JP (occurrence: JP)
  Receive Date: 20240502
  Receipt Date: 20250908
  Transmission Date: 20251021
  Serious: No
  Sender: CHIESI
  Company Number: JP-AMRYT PHARMACEUTICALS DAC-AEGR007089

PATIENT
  Age: 76 Year
  Sex: Male
  Weight: 61.3 kg

DRUGS (14)
  1. LOMITAPIDE [Suspect]
     Active Substance: LOMITAPIDE
     Indication: Type IIa hyperlipidaemia
     Dosage: 10 MILLIGRAM, QD
     Route: 048
     Dates: start: 20170714
  2. LOMITAPIDE [Suspect]
     Active Substance: LOMITAPIDE
     Dosage: 15 MILLIGRAM, BIW
     Route: 048
     Dates: start: 20210624
  3. LEQVIO [Concomitant]
     Active Substance: INCLISIRAN SODIUM
     Indication: Hypercholesterolaemia
     Route: 058
     Dates: start: 20240319
  4. LEQVIO [Concomitant]
     Active Substance: INCLISIRAN SODIUM
     Route: 058
  5. REPATHA [Concomitant]
     Active Substance: EVOLOCUMAB
     Indication: Hypercholesterolaemia
     Route: 058
     Dates: start: 20161003, end: 20240305
  6. PRALUENT [Concomitant]
     Active Substance: ALIROCUMAB
     Indication: Hypercholesterolaemia
     Route: 058
     Dates: start: 20181122
  7. ROSUVASTATIN [Concomitant]
     Active Substance: ROSUVASTATIN
     Indication: Hypercholesterolaemia
     Dosage: 20 MILLIGRAM, QD
     Route: 048
     Dates: start: 200504
  8. ZETIA [Concomitant]
     Active Substance: EZETIMIBE
     Indication: Hypercholesterolaemia
     Dosage: 10 MILLIGRAM, QD
     Route: 048
     Dates: start: 200706
  9. COLESTILAN CHLORIDE [Concomitant]
     Active Substance: COLESTILAN CHLORIDE
     Indication: Hypercholesterolaemia
     Dosage: 3.62 GRAM, TID
     Route: 048
     Dates: start: 200504
  10. ICOSAPENT ETHYL [Concomitant]
     Active Substance: ICOSAPENT ETHYL
     Indication: Hyperlipidaemia
     Dosage: 3 DOSAGE FORM, TID
     Route: 048
     Dates: start: 200504
  11. ATENOLOL [Concomitant]
     Active Substance: ATENOLOL
     Indication: Angina pectoris
     Dosage: 25 MILLIGRAM, QD
     Route: 048
     Dates: start: 2002
  12. ASPIRIN [Concomitant]
     Active Substance: ASPIRIN
     Indication: Angina pectoris
     Dosage: 100 MILLIGRAM, QD
     Route: 048
     Dates: start: 2002
  13. MOSAPRIDE [Concomitant]
     Active Substance: MOSAPRIDE
     Indication: Prophylaxis
     Dosage: 10 MILLIGRAM, BID
     Route: 048
     Dates: start: 2002
  14. TEPRENONE TEVA [Concomitant]
     Indication: Prophylaxis
     Dosage: 1.5 GRAM, TID
     Route: 048
     Dates: start: 20191010

REACTIONS (3)
  - Electrocardiogram PR prolongation [Unknown]
  - Electrocardiogram high voltage [Unknown]
  - Therapeutic product effect incomplete [Unknown]

NARRATIVE: CASE EVENT DATE: 20231003
